FAERS Safety Report 9210377 (Version 2)
Quarter: 2014Q1

REPORT INFORMATION
  Report Type: Spontaneous
  Country: US (occurrence: US)
  Receive Date: 20130404
  Receipt Date: 20140103
  Transmission Date: 20141002
  Serious: Yes (Hospitalization, Other)
  Sender: FDA-Public Use
  Company Number: US-BAYER-2013-040340

PATIENT
  Age: 27 Year
  Sex: Female

DRUGS (5)
  1. YAZ [Suspect]
     Indication: CONTRACEPTION
     Dosage: UNK
     Dates: start: 200506
  2. YASMIN [Suspect]
     Dosage: UNK
     Dates: start: 200506
  3. CITALOPRAM [Concomitant]
  4. MAXAIR [Concomitant]
  5. ADVAIR [Concomitant]

REACTIONS (6)
  - Gallbladder injury [None]
  - Cholecystitis acute [None]
  - Injury [None]
  - Pain [None]
  - Fear of disease [None]
  - Pain [None]
